FAERS Safety Report 8406189-1 (Version None)
Quarter: 2012Q2

REPORT INFORMATION
  Report Type: 
  Country: None (occurrence: None)
  Receive Date: 20120323
  Receipt Date: 20110518
  Transmission Date: 20120825
  Serious: Yes (Hospitalization)
  Sender: FDA-Public Use
  Company Number: 163-21880-11052546

PATIENT
  Age: 80 Year
  Sex: Female
  Weight: 62 kg

DRUGS (2)
  1. REVLIMID [Suspect]
     Indication: MULTIPLE MYELOMA
     Dosage: 15 MG, QOD,PO; 15 MG, QOD, PO
     Route: 048
     Dates: start: 20090612, end: 20100617
  2. REVLIMID [Suspect]
     Indication: MULTIPLE MYELOMA
     Dosage: 15 MG, QOD,PO; 15 MG, QOD, PO
     Route: 048
     Dates: start: 20110113

REACTIONS (3)
  - ANAEMIA [None]
  - OEDEMA [None]
  - PNEUMONIA [None]
